FAERS Safety Report 23357228 (Version 1)
Quarter: 2024Q1

REPORT INFORMATION
  Report Type: Spontaneous
  Country: None (occurrence: FR)
  Receive Date: 20240102
  Receipt Date: 20240102
  Transmission Date: 20240410
  Serious: Yes (Hospitalization)
  Sender: FDA-Public Use
  Company Number: FR-B.Braun Medical Inc.-2150028

PATIENT
  Age: 86 Year
  Sex: Male

DRUGS (11)
  1. POTASSIUM CHLORIDE [Suspect]
     Active Substance: POTASSIUM CHLORIDE
     Indication: Mineral supplementation
     Route: 048
  2. ACETAMINOPHEN [Suspect]
     Active Substance: ACETAMINOPHEN
  3. ALLOPURINOL [Suspect]
     Active Substance: ALLOPURINOL
  4. ALPRAZOLAM [Suspect]
     Active Substance: ALPRAZOLAM
  5. ATORVASTATIN [Suspect]
     Active Substance: ATORVASTATIN
  6. ELIQUIS [Suspect]
     Active Substance: APIXABAN
  7. FUROSEMIDE [Suspect]
     Active Substance: FUROSEMIDE
  8. KARDEGIC [Suspect]
     Active Substance: ASPIRIN DL-LYSINE
  9. PANTOPRAZOLE [Suspect]
     Active Substance: PANTOPRAZOLE
  10. RAMIPRIL [Suspect]
     Active Substance: RAMIPRIL
  11. NITROGLYCERIN [Suspect]
     Active Substance: NITROGLYCERIN

REACTIONS (2)
  - Rash pruritic [None]
  - Off label use [None]
